FAERS Safety Report 25817396 (Version 2)
Quarter: 2025Q4

REPORT INFORMATION
  Report Type: Spontaneous
  Country: EU (occurrence: EU)
  Receive Date: 20250918
  Receipt Date: 20251016
  Transmission Date: 20260118
  Serious: Yes (Death, Hospitalization)
  Sender: MERCK SHARP & DOHME LLC
  Company Number: EU-009507513-2329749

PATIENT
  Age: 68 Year
  Sex: Female

DRUGS (3)
  1. PEMBROLIZUMAB [Suspect]
     Active Substance: PEMBROLIZUMAB
     Indication: Lung cancer metastatic
     Dosage: 10 CYCLES
     Route: 065
     Dates: start: 20241216, end: 20250806
  2. HYDROCHLOROTHIAZIDE\LOSARTAN POTASSIUM [Concomitant]
     Active Substance: HYDROCHLOROTHIAZIDE\LOSARTAN POTASSIUM
     Indication: Hypertension
     Dosage: 50/12.5 MG 1 TABLET A DAY
  3. PRAVASTATIN [Concomitant]
     Active Substance: PRAVASTATIN
     Indication: Hypercholesterolaemia
     Dosage: 20MG 1 TABLET A DAY

REACTIONS (3)
  - Multiple organ dysfunction syndrome [Fatal]
  - Pancreatitis acute [Fatal]
  - Hepatitis [Unknown]

NARRATIVE: CASE EVENT DATE: 20250801
